FAERS Safety Report 13256091 (Version 1)
Quarter: 2017Q1

REPORT INFORMATION
  Report Type: Spontaneous
  Country: US (occurrence: US)
  Receive Date: 20170221
  Receipt Date: 20170221
  Transmission Date: 20170428
  Serious: Yes (Hospitalization, Other)
  Sender: FDA-Public Use
  Company Number: US-GLAXOSMITHKLINE-US2017023661

PATIENT

DRUGS (1)
  1. FLONASE ALLERGY RELIEF [Suspect]
     Active Substance: FLUTICASONE PROPIONATE
     Indication: HYPERSENSITIVITY
     Dosage: UNK

REACTIONS (9)
  - Anxiety [Recovered/Resolved]
  - Haemorrhage [Recovered/Resolved]
  - Haemoglobin decreased [Recovered/Resolved]
  - Vascular injury [Recovered/Resolved]
  - Panic attack [Recovered/Resolved]
  - Hospitalisation [Recovered/Resolved]
  - Haematemesis [Recovered/Resolved]
  - Thrombosis [Recovered/Resolved]
  - Epistaxis [Recovered/Resolved]
